FAERS Safety Report 15587511 (Version 1)
Quarter: 2018Q4

REPORT INFORMATION
  Report Type: Spontaneous
  Country: IN (occurrence: IN)
  Receive Date: 20181105
  Receipt Date: 20181105
  Transmission Date: 20190205
  Serious: Yes (Life-Threatening, Hospitalization, Other)
  Sender: FDA-Public Use
  Company Number: IN-SA-2018SA300957

PATIENT
  Age: 26 Year
  Sex: Female

DRUGS (4)
  1. LIGNOCAINE WITH ADRENALINE [Concomitant]
     Active Substance: EPINEPHRINE BITARTRATE\LIDOCAINE HYDROCHLORIDE
     Dosage: 1% LIGNOCAINE AND ADRENALINE IN THE CONCENTRATION OF 1:1000 AMOUNTING TO 30 CC
  2. DIAZEPAM. [Concomitant]
     Active Substance: DIAZEPAM
     Dosage: INJECTION
     Route: 042
  3. CEFOTAXIME SODIUM [Suspect]
     Active Substance: CEFOTAXIME SODIUM
     Indication: PROPHYLAXIS
     Dosage: 1 G (INJECTION)
     Route: 042
  4. DICLOFENAC SODIUM. [Concomitant]
     Active Substance: DICLOFENAC SODIUM
     Indication: PROPHYLAXIS
     Dosage: ONE AMPOULE
     Route: 030

REACTIONS (8)
  - Disseminated intravascular coagulation [Recovering/Resolving]
  - Cyanosis [Recovering/Resolving]
  - Skin haemorrhage [Recovering/Resolving]
  - Aggression [Recovering/Resolving]
  - Irritability [Recovering/Resolving]
  - Ecchymosis [Recovering/Resolving]
  - Hyperhidrosis [Recovering/Resolving]
  - Anaphylactic reaction [Unknown]
